FAERS Safety Report 8525548-X (Version None)
Quarter: 2012Q3

REPORT INFORMATION
  Report Type: 
  Country: None (occurrence: None)
  Receive Date: 20120720
  Receipt Date: 20120713
  Transmission Date: 20120928
  Serious: Yes (Hospitalization)
  Sender: FDA-Public Use
  Company Number: US-CELGENEUS-163-21880-12071594

PATIENT
  Sex: Female
  Weight: 65.9 kg

DRUGS (37)
  1. HYDROCODONE BITARTRATE [Concomitant]
     Dosage: 10 MILLIGRAM
     Route: 048
     Dates: start: 20111219
  2. PREVACID [Concomitant]
     Indication: ILL-DEFINED DISORDER
     Dosage: 30 MILLIGRAM
     Route: 048
     Dates: start: 20090903
  3. VALTREX [Concomitant]
     Indication: ANTIVIRAL PROPHYLAXIS
     Dosage: 500 MILLIGRAM
     Route: 048
     Dates: start: 20110920
  4. VANCOMYCIN HYCHLORIDE [Concomitant]
     Indication: ABDOMINAL PAIN
     Dosage: 2000 MILLIGRAM
     Route: 041
     Dates: start: 20120626, end: 20120626
  5. XANAX [Concomitant]
     Indication: ANXIETY
     Dosage: .5 MILLIGRAM
     Route: 048
     Dates: start: 20111024
  6. DEXAMETHASONE [Suspect]
     Indication: MULTIPLE MYELOMA
     Dosage: 40 MILLIGRAM
     Route: 065
     Dates: start: 20110922, end: 20111114
  7. ARTIFICIAL TEARS [Concomitant]
     Route: 061
     Dates: start: 20120131
  8. ASPIRIN [Concomitant]
     Indication: ANTICOAGULANT THERAPY
     Dosage: 325 MILLIGRAM
     Route: 048
     Dates: start: 20110920
  9. PIPERACILLIN [Concomitant]
     Indication: ABDOMINAL PAIN
     Dosage: 3.375 GRAM
     Route: 041
     Dates: start: 20120625, end: 20120626
  10. REVLIMID [Suspect]
     Dosage: 15 MILLIGRAM
     Route: 048
     Dates: start: 20111121, end: 20120322
  11. CARFILZOMIB [Suspect]
     Dosage: 33.8 MILLIGRAM
     Route: 065
     Dates: start: 20120416, end: 20120709
  12. DEXAMETHASONE [Suspect]
     Dosage: 20 MILLIGRAM
     Route: 065
     Dates: start: 20111121
  13. HYDROMORPHONE HCL [Concomitant]
     Indication: ABDOMINAL PAIN
     Dosage: 1 MILLIGRAM
     Route: 041
     Dates: start: 20120625, end: 20120625
  14. LYRICA [Concomitant]
     Dosage: 300 MILLIGRAM
     Route: 048
     Dates: start: 20091208
  15. MIRALAX [Concomitant]
     Indication: CONSTIPATION
     Dosage: 1 PACK
     Route: 048
     Dates: start: 20091102
  16. MORPHINE SULFATE [Concomitant]
     Indication: ABDOMINAL PAIN
     Dosage: 2 MILLIGRAM
     Route: 041
     Dates: start: 20120625, end: 20120626
  17. ONDANSETRON HYDROCHLORIDE [Concomitant]
     Indication: NAUSEA
     Dosage: 8 MILLIGRAM
     Route: 041
     Dates: start: 20120625, end: 20120626
  18. RANITIDINE [Concomitant]
     Indication: GASTRITIS
     Dosage: 300 MILLIGRAM
     Route: 048
     Dates: start: 20111219
  19. SODIUM CHLORIDE [Concomitant]
     Dosage: 3000 MILLILITER
     Route: 041
     Dates: start: 20120625, end: 20120626
  20. SPIRIVA [Concomitant]
     Dosage: 18 MICROGRAM
     Route: 045
     Dates: start: 20091230
  21. VITAMIN C + CALCIUM [Concomitant]
     Indication: ROUTINE HEALTH MAINTENANCE
     Dosage: 1 TABLET
     Route: 048
     Dates: start: 20101118
  22. CIPROFLOXACIN HCL [Concomitant]
     Indication: ANTIBIOTIC PROPHYLAXIS
     Dosage: 500 MILLIGRAM
     Route: 048
     Dates: start: 20110920
  23. LOMOTIL [Concomitant]
     Dosage: 1 TABLET
     Route: 048
     Dates: start: 20120626, end: 20120626
  24. MULTI-VITAMINS [Concomitant]
     Indication: SUPPLEMENTATION THERAPY
     Dosage: 1 TABLET
     Route: 048
     Dates: start: 20100819
  25. REVLIMID [Suspect]
     Indication: MULTIPLE MYELOMA
     Dosage: 25 MILLIGRAM
     Route: 048
     Dates: start: 20110922, end: 20111106
  26. CARFILZOMIB [Suspect]
     Indication: MULTIPLE MYELOMA
     Dosage: 33.8 MILLIGRAM
     Route: 065
     Dates: start: 20110922, end: 20110923
  27. LOMOTIL [Concomitant]
     Dosage: 2 TABLET
     Route: 048
     Dates: start: 20120625, end: 20120625
  28. LEVAQUIN [Concomitant]
     Dosage: 500 MILLIGRAM
     Route: 048
     Dates: start: 20120514
  29. MUCINEX [Concomitant]
     Dosage: 1 TABLET
     Route: 048
     Dates: start: 20091221
  30. ONDANSETRON HYDROCHLORIDE [Concomitant]
     Dosage: 4 MILLIGRAM
     Route: 041
     Dates: start: 20120625, end: 20120625
  31. REVLIMID [Suspect]
     Dosage: 10 MILLIGRAM
     Route: 048
     Dates: start: 20120417, end: 20120701
  32. CARFILZOMIB [Suspect]
     Dosage: 45.6 MILLIGRAM
     Route: 065
     Dates: start: 20110929, end: 20120330
  33. DEXAMETHASONE [Suspect]
     Dosage: 12 MILLIGRAM
     Route: 065
     Dates: start: 20120416, end: 20120625
  34. METRONIDAZOLE [Concomitant]
     Indication: ABDOMINAL PAIN
     Dosage: 500 MILLIGRAM
     Route: 048
     Dates: start: 20120625, end: 20120626
  35. ZOFRAN [Concomitant]
     Indication: NAUSEA
     Dosage: 8 MILLIGRAM
     Route: 041
     Dates: start: 20120625, end: 20120626
  36. ZOLOFT [Concomitant]
     Indication: DEPRESSION
     Dosage: 50 MILLIGRAM
     Route: 048
     Dates: start: 20090903
  37. ZYRTEC [Concomitant]
     Dosage: 10 MILLIGRAM
     Route: 048
     Dates: start: 20111107

REACTIONS (1)
  - COLITIS [None]
